FAERS Safety Report 18236220 (Version 1)
Quarter: 2020Q3

REPORT INFORMATION
  Report Type: Spontaneous
  Country: CN (occurrence: CN)
  Receive Date: 20200906
  Receipt Date: 20200906
  Transmission Date: 20201103
  Serious: Yes (Hospitalization)
  Sender: FDA-Public Use
  Company Number: CN-ROCHE-2671239

PATIENT
  Age: 55 Year
  Sex: Male
  Weight: 81 kg

DRUGS (6)
  1. PACLITAXEL ALBUMIN [Suspect]
     Active Substance: PACLITAXEL
     Indication: LUNG ADENOCARCINOMA STAGE IV
     Dosage: DATE OF TREATMENT: 16 APR 2020, 24 APR 2020, 14 MAY 2020, 14 JUN 2020, 13 JUL 2020, ON DAY1 AND DAY8
     Route: 065
  2. AVASTIN [Suspect]
     Active Substance: BEVACIZUMAB
     Route: 041
     Dates: start: 20200808, end: 20200808
  3. PACLITAXEL ALBUMIN [Suspect]
     Active Substance: PACLITAXEL
     Route: 041
     Dates: start: 20200808, end: 20200808
  4. PEMETREXED. [Concomitant]
     Active Substance: PEMETREXED
     Indication: LUNG ADENOCARCINOMA STAGE IV
     Dosage: ON DAY 1
     Dates: start: 2019
  5. AVASTIN [Suspect]
     Active Substance: BEVACIZUMAB
     Indication: LUNG ADENOCARCINOMA STAGE IV
     Dosage: ON DAY1 AND DATE OF TREATMENT: 16 APR 2020, 24 APR 2020, 14 MAY 2020, 14 JUN 2020 AND 13 JUL 2020
     Route: 065
     Dates: start: 2019
  6. CARBOPLATIN. [Concomitant]
     Active Substance: CARBOPLATIN
     Indication: LUNG ADENOCARCINOMA STAGE IV
     Dosage: ON DAY 1
     Dates: start: 2019

REACTIONS (1)
  - Myelosuppression [Recovering/Resolving]

NARRATIVE: CASE EVENT DATE: 2020
